FAERS Safety Report 8538099-3 (Version None)
Quarter: 2012Q3

REPORT INFORMATION
  Report Type: 
  Country: None (occurrence: None)
  Receive Date: 20120725
  Receipt Date: 20120719
  Transmission Date: 20120928
  Serious: Yes (Other)
  Sender: FDA-Public Use
  Company Number: CA-ROCHE-GNE298667

PATIENT
  Sex: Male

DRUGS (2)
  1. XOLAIR [Suspect]
     Indication: ASTHMA
     Route: 058
     Dates: start: 20090519
  2. SPIRIVA [Concomitant]

REACTIONS (6)
  - COUGH [None]
  - DYSPNOEA [None]
  - PNEUMONIA [None]
  - HAEMORRHAGE [None]
  - INJECTION SITE SWELLING [None]
  - DRUG INEFFECTIVE [None]
